FAERS Safety Report 6131224-3 (Version None)
Quarter: 2009Q1

REPORT INFORMATION
  Report Type: 
  Country: None (occurrence: None)
  Receive Date: 20090325
  Receipt Date: 20070328
  Transmission Date: 20090719
  Serious: No
  Sender: FDA-Public Use
  Company Number: US-BRISTOL-MYERS SQUIBB COMPANY-13697479

PATIENT
  Age: 86 Year
  Sex: Female
  Weight: 51 kg

DRUGS (3)
  1. ERBITUX [Suspect]
     Indication: COLON CANCER
     Route: 042
     Dates: start: 20070301, end: 20070301
  2. BENADRYL [Concomitant]
     Route: 042
  3. DEXAMETHASONE TAB [Concomitant]
     Route: 042

REACTIONS (1)
  - DRUG ADMINISTRATION ERROR [None]
